FAERS Safety Report 5910273-1 (Version None)
Quarter: 2008Q4

REPORT INFORMATION
  Report Type: 
  Country: None (occurrence: None)
  Receive Date: 20081006
  Receipt Date: 20081006
  Transmission Date: 20090506
  Serious: Yes (Death)
  Sender: FDA-Public Use
  Company Number: None

PATIENT
  Age: 49 Year
  Sex: Female
  Weight: 92.9 kg

DRUGS (3)
  1. SEREVENT [Suspect]
     Indication: ASTHMA
     Dosage: 1 PUFF BID BY INHALATIO
     Route: 055
     Dates: start: 20080714, end: 20080913
  2. QVAR 40 [Suspect]
     Dosage: 2 PUFFS BID BY INHALATI
     Route: 055
     Dates: start: 20080714, end: 20080913
  3. MOTRIN [Concomitant]

REACTIONS (2)
  - DIZZINESS [None]
  - NAUSEA [None]
